FAERS Safety Report 7945938-3 (Version None)
Quarter: 2011Q4

REPORT INFORMATION
  Report Type: 
  Country: None (occurrence: None)
  Receive Date: 20111129
  Receipt Date: 20111122
  Transmission Date: 20120403
  Serious: Yes (Other)
  Sender: FDA-Public Use
  Company Number: PHHY2011MX102835

PATIENT
  Sex: Female

DRUGS (3)
  1. DIOVAN HCT [Suspect]
     Indication: HYPERTENSION
     Dosage: 1 TABLET (80/12.5 MG) DAILY
     Route: 048
  2. METFORMIN HCL [Concomitant]
     Dosage: 1 TABLET DAILY
     Dates: start: 20080101
  3. GLYBURIDE [Concomitant]
     Dosage: 2 TABLETS DAILY
     Dates: start: 20080101

REACTIONS (1)
  - GALLBLADDER DISORDER [None]
